FAERS Safety Report 8009603-9 (Version None)
Quarter: 2011Q4

REPORT INFORMATION
  Report Type: 
  Country: None (occurrence: None)
  Receive Date: 20111228
  Receipt Date: 20111216
  Transmission Date: 20120403
  Serious: Yes (Hospitalization)
  Sender: FDA-Public Use
  Company Number: FR-BIOGENIDEC-2011BI037737

PATIENT
  Age: 40 Year
  Sex: Female
  Weight: 46 kg

DRUGS (8)
  1. LAMICTAL [Concomitant]
     Indication: EPILEPSY
     Dates: start: 20021101
  2. TYSABRI [Suspect]
     Indication: MULTIPLE SCLEROSIS
     Route: 042
     Dates: start: 20080130
  3. PAROXETINE HCL [Concomitant]
     Indication: DEPRESSION
     Dates: start: 20030101, end: 20110301
  4. SPECIAFOLDINE [Concomitant]
     Dates: start: 20110401
  5. NEURONTIN [Concomitant]
     Indication: PAIN
     Dates: start: 20021101
  6. LIORESAL [Concomitant]
     Indication: PAIN
     Dates: start: 20060101
  7. MODURETIC 5-50 [Concomitant]
     Indication: HYPERTENSION
  8. PRAXINOR [Concomitant]
     Indication: HYPERTENSION

REACTIONS (1)
  - ACUTE PSYCHOSIS [None]
